FAERS Safety Report 18519502 (Version 1)
Quarter: 2020Q4

REPORT INFORMATION
  Report Type: Other
  Country: CA (occurrence: CA)
  Receive Date: 20201119
  Receipt Date: 20201119
  Transmission Date: 20210114
  Serious: Yes (Life-Threatening)
  Sender: FDA-Public Use
  Company Number: CA-CELLTRION INC.-2020CA032163

PATIENT

DRUGS (8)
  1. ACETYLCYSTEINE. [Suspect]
     Active Substance: ACETYLCYSTEINE
     Indication: THROMBOTIC THROMBOCYTOPENIC PURPURA
     Route: 042
  2. METHYLPREDNISOLONE. [Concomitant]
     Active Substance: METHYLPREDNISOLONE
     Indication: IMMUNOSUPPRESSION
  3. BORTEZOMIB. [Suspect]
     Active Substance: BORTEZOMIB
     Indication: IMMUNOSUPPRESSION
     Dosage: 1.3 MILLIGRAM
     Route: 042
  4. METHYLPREDNISOLONE. [Concomitant]
     Active Substance: METHYLPREDNISOLONE
     Indication: THROMBOTIC THROMBOCYTOPENIC PURPURA
     Route: 065
  5. RITUXIMAB (UNKNOWN) [Suspect]
     Active Substance: RITUXIMAB
     Indication: IMMUNOSUPPRESSION
     Dosage: 375.0 MG/M2, 1 EVERY 1 WEEK
     Route: 042
  6. CYCLOPHOSPHAMIDE. [Suspect]
     Active Substance: CYCLOPHOSPHAMIDE
     Indication: IMMUNOSUPPRESSION
     Route: 042
  7. ACITRETIN. [Concomitant]
     Active Substance: ACITRETIN
     Indication: PSORIASIS
     Route: 065
  8. CICLOSPORIN [Suspect]
     Active Substance: CYCLOSPORINE
     Indication: THROMBOTIC THROMBOCYTOPENIC PURPURA
     Dosage: 300 MILLIGRAM, 1 EVERY 1 DAY
     Route: 048

REACTIONS (16)
  - Vascular device infection [Unknown]
  - Abdominal abscess [Unknown]
  - Cerebrovascular accident [Unknown]
  - Klebsiella infection [Unknown]
  - Brain oedema [Unknown]
  - Hemianopia [Unknown]
  - Clostridium difficile infection [Unknown]
  - Empyema [Unknown]
  - Staphylococcal sepsis [Unknown]
  - Candida infection [Unknown]
  - Muscular weakness [Unknown]
  - Treatment failure [Unknown]
  - Bacteraemia [Unknown]
  - Enterococcal infection [Unknown]
  - Drug ineffective [Unknown]
  - Off label use [Unknown]
